FAERS Safety Report 11387392 (Version 2)
Quarter: 2015Q3

REPORT INFORMATION
  Report Type: Report from Study
  Country: US (occurrence: US)
  Receive Date: 20150817
  Receipt Date: 20150831
  Transmission Date: 20151125
  Serious: Yes (Death, Congenital Anomaly)
  Sender: FDA-Public Use
  Company Number: US-BIOGENIDEC-2015BI112379

PATIENT
  Age: 10 Day
  Sex: Male

DRUGS (1)
  1. TYSABRI [Suspect]
     Active Substance: NATALIZUMAB
     Indication: EXPOSURE VIA FATHER
     Route: 064
     Dates: start: 20141008

REACTIONS (6)
  - Congenital hypothyroidism [Unknown]
  - Foetal exposure during pregnancy [Recovered/Resolved]
  - Brain malformation [Unknown]
  - Congenital adrenal gland hypoplasia [Unknown]
  - Death neonatal [Fatal]
  - Hydrocephalus [Unknown]

NARRATIVE: CASE EVENT DATE: 20150701
